FAERS Safety Report 5660944-X (Version None)
Quarter: 2008Q1

REPORT INFORMATION
  Report Type: 
  Country: None (occurrence: None)
  Receive Date: 20080311
  Receipt Date: 20080228
  Transmission Date: 20080703
  Serious: Yes (Other)
  Sender: FDA-Public Use
  Company Number: AU-PFIZER INC-2006105658

PATIENT
  Sex: Male
  Weight: 91 kg

DRUGS (6)
  1. SU-011,248 [Suspect]
     Indication: METASTATIC RENAL CELL CARCINOMA
     Route: 048
  2. SENOKOT [Concomitant]
  3. ZYLOPRIM [Concomitant]
     Dates: start: 19960101
  4. INDAPAMIDE [Concomitant]
     Dates: start: 19910101
  5. NORVASC [Concomitant]
     Dates: start: 19910101
  6. ZOLADEX [Concomitant]
     Dates: start: 20020101

REACTIONS (1)
  - MOBILITY DECREASED [None]
